FAERS Safety Report 4762909-9 (Version None)
Quarter: 2005Q3

REPORT INFORMATION
  Report Type: 
  Country: None (occurrence: None)
  Receive Date: 20050907
  Receipt Date: 20050609
  Transmission Date: 20060218
  Serious: Yes (Other)
  Sender: FDA-Public Use
  Company Number: PHEH2005US06615

PATIENT
  Age: 76 Year
  Sex: Male

DRUGS (6)
  1. ZOMETA [Suspect]
     Indication: METASTASES TO BONE
     Dosage: 3.5 MG EVERY MONTH
     Route: 042
     Dates: start: 20030414, end: 20041201
  2. ZOMETA [Suspect]
     Dosage: 3.5MG UNK
     Dates: start: 20050301
  3. ATENOLOL [Concomitant]
     Indication: BLOOD PRESSURE INCREASED
     Dosage: 100 MG, QD
  4. MULTI-VITAMINS [Concomitant]
     Dosage: UNK, QD
  5. MAXZIDE [Concomitant]
  6. AMOXICILLIN [Concomitant]
     Dosage: 7 DAYS

REACTIONS (16)
  - ASEPTIC NECROSIS BONE [None]
  - BLOOD CREATININE INCREASED [None]
  - BLOOD UREA INCREASED [None]
  - BONE DEBRIDEMENT [None]
  - BONE DISORDER [None]
  - GINGIVAL PAIN [None]
  - GINGIVAL SWELLING [None]
  - GINGIVITIS [None]
  - JAW DISORDER [None]
  - OSTEONECROSIS [None]
  - PAIN IN JAW [None]
  - PURULENCE [None]
  - RENAL CYST [None]
  - RENAL IMPAIRMENT [None]
  - SOFT TISSUE INFECTION [None]
  - TOOTH EXTRACTION [None]
